FAERS Safety Report 13504564 (Version 3)
Quarter: 2021Q1

REPORT INFORMATION
  Report Type: Spontaneous
  Country: US (occurrence: US)
  Receive Date: 20170502
  Receipt Date: 20210303
  Transmission Date: 20210419
  Serious: No
  Sender: FDA-Public Use
  Company Number: US-IMPAX LABORATORIES, INC-2017-IPXL-00796

PATIENT
  Sex: Male
  Weight: 75 kg

DRUGS (3)
  1. RYTARY [Suspect]
     Active Substance: CARBIDOPA\LEVODOPA
     Dosage: 48.75/195MG; 2 CAPSULE WITH 1 CAPSULE OF CARBIDOPA/LEVODOPA IN THE MORNING
     Route: 048
  2. RYTARY [Suspect]
     Active Substance: CARBIDOPA\LEVODOPA
     Indication: PARKINSON^S DISEASE
     Dosage: 48.75/195MG 3 CAPSULES EVERY 4 HOURS
     Route: 048
     Dates: start: 2015
  3. RYTARY [Suspect]
     Active Substance: CARBIDOPA\LEVODOPA
     Dosage: 61.25/245 MG, 1 CAPSULES, 8/DAY (EVERY 2.5?3 HOURS)
     Route: 048
     Dates: start: 20210121

REACTIONS (3)
  - Therapy cessation [Unknown]
  - Decreased appetite [Unknown]
  - Weight decreased [Unknown]
